FAERS Safety Report 9101292 (Version 3)
Quarter: 2015Q4

REPORT INFORMATION
  Report Type: Report from Study
  Country: US (occurrence: US)
  Receive Date: 20130218
  Receipt Date: 20151021
  Transmission Date: 20160305
  Serious: Yes (Hospitalization)
  Sender: FDA-Public Use
  Company Number: US-ROCHE-1132928

PATIENT
  Age: 59 Year
  Sex: Male
  Weight: 70.37 kg

DRUGS (14)
  1. XELODA [Suspect]
     Active Substance: CAPECITABINE
     Route: 048
     Dates: start: 20120807
  2. ATIVAN [Concomitant]
     Active Substance: LORAZEPAM
     Route: 048
  3. XELODA [Suspect]
     Active Substance: CAPECITABINE
     Dosage: 8 TABLET DAY FOR 14 THEN OFF FOR 7 DAY
     Route: 048
  4. MAGNESIUM CITRATE. [Concomitant]
     Active Substance: MAGNESIUM CITRATE
     Dosage: 1 BOTTLE
     Route: 048
     Dates: start: 20120917, end: 20120917
  5. ZOFRAN [Concomitant]
     Active Substance: ONDANSETRON HYDROCHLORIDE
     Route: 042
  6. COMPAZINE [Concomitant]
     Active Substance: PROCHLORPERAZINE MALEATE
     Route: 048
  7. BEVACIZUMAB [Concomitant]
     Active Substance: BEVACIZUMAB
     Indication: COLORECTAL CANCER METASTATIC
     Route: 042
  8. OXALIPLATIN. [Concomitant]
     Active Substance: OXALIPLATIN
     Indication: COLON CANCER STAGE IV
     Route: 042
     Dates: start: 201301
  9. CAMPTOSAR [Concomitant]
     Active Substance: IRINOTECAN HYDROCHLORIDE
     Route: 042
  10. LEUCOVORIN. [Concomitant]
     Active Substance: LEUCOVORIN
  11. OXALIPLATIN. [Concomitant]
     Active Substance: OXALIPLATIN
  12. XELODA [Suspect]
     Active Substance: CAPECITABINE
     Indication: COLORECTAL CANCER METASTATIC
     Route: 048
     Dates: start: 201207
  13. AVASTIN [Suspect]
     Active Substance: BEVACIZUMAB
     Indication: COLORECTAL CANCER METASTATIC
     Route: 042
  14. ELOXATIN [Concomitant]
     Active Substance: OXALIPLATIN
     Route: 042

REACTIONS (17)
  - Weight decreased [Recovered/Resolved]
  - Colostomy closure [Recovered/Resolved]
  - Epigastric discomfort [Recovering/Resolving]
  - Colostomy [Not Recovered/Not Resolved]
  - Vomiting [Recovered/Resolved]
  - Constipation [Recovering/Resolving]
  - Hypoaesthesia [Unknown]
  - Nausea [Recovered/Resolved]
  - Abdominal pain upper [Recovering/Resolving]
  - Palmar-plantar erythrodysaesthesia syndrome [Recovered/Resolved]
  - Asthenia [Recovered/Resolved]
  - Bronchitis [Unknown]
  - Exposure via direct contact [Unknown]
  - Surgery [Unknown]
  - Muscle spasms [Not Recovered/Not Resolved]
  - Limb discomfort [Unknown]
  - Dry skin [Unknown]

NARRATIVE: CASE EVENT DATE: 20120807
